FAERS Safety Report 11967092 (Version 1)
Quarter: 2016Q1

REPORT INFORMATION
  Report Type: Spontaneous
  Country: JP (occurrence: JP)
  Receive Date: 20160127
  Receipt Date: 20160127
  Transmission Date: 20160526
  Serious: Yes (Hospitalization)
  Sender: FDA-Public Use
  Company Number: JP-WATSON-2016-01097

PATIENT
  Age: 31 Month
  Sex: Male
  Weight: 10 kg

DRUGS (7)
  1. NITRIC OXIDE. [Concomitant]
     Active Substance: NITRIC OXIDE
     Indication: ANAESTHESIA PROCEDURE
     Dosage: 20 PPM
     Route: 065
  2. DOPAMINE [Concomitant]
     Active Substance: DOPAMINE\DOPAMINE HYDROCHLORIDE
     Indication: ANAESTHESIA PROCEDURE
     Dosage: 10 ?G/KG/MIN
     Route: 065
  3. HEPARIN [Suspect]
     Active Substance: HEPARIN SODIUM
     Indication: PRODUCT USED FOR UNKNOWN INDICATION
     Dosage: UNK
     Route: 065
  4. FENTANYL. [Concomitant]
     Active Substance: FENTANYL
     Indication: ANAESTHESIA
     Route: 065
  5. DOBUTAMINE [Concomitant]
     Active Substance: DOBUTAMINE\DOBUTAMINE HYDROCHLORIDE
     Indication: ANAESTHESIA PROCEDURE
     Dosage: 10 ?G/KG/MIN
     Route: 065
  6. ROCURONIUM [Concomitant]
     Active Substance: ROCURONIUM BROMIDE
     Indication: ANAESTHESIA
     Route: 065
  7. ADRENALINE                         /00003901/ [Concomitant]
     Active Substance: EPINEPHRINE
     Indication: ANAESTHESIA PROCEDURE
     Dosage: 200 NG/KG/MIN
     Route: 065

REACTIONS (2)
  - Coagulopathy [Recovering/Resolving]
  - Haemorrhage [Recovering/Resolving]
